FAERS Safety Report 6293341-7 (Version None)
Quarter: 2009Q3

REPORT INFORMATION
  Report Type: 
  Country: None (occurrence: None)
  Receive Date: 20090731
  Receipt Date: 20090723
  Transmission Date: 20100115
  Serious: Yes (Other)
  Sender: FDA-Public Use
  Company Number: PHHY2009DE31416

PATIENT
  Sex: Female

DRUGS (1)
  1. EXELON [Suspect]
     Indication: DEMENTIA
     Dosage: 9.5 MG DAILY
     Route: 062
     Dates: start: 20090401, end: 20090601

REACTIONS (2)
  - CONCOMITANT DISEASE AGGRAVATED [None]
  - SYSTEMIC LUPUS ERYTHEMATOSUS [None]
